FAERS Safety Report 24743664 (Version 1)
Quarter: 2024Q4

REPORT INFORMATION
  Report Type: Spontaneous
  Country: US (occurrence: None)
  Receive Date: 20241216
  Receipt Date: 20241216
  Transmission Date: 20250114
  Serious: Yes (Hospitalization, Disabling, Other)
  Sender: Public
  Company Number: None

PATIENT
  Age: 18 Year
  Sex: Female
  Weight: 57.6 kg

DRUGS (1)
  1. JOLESSA [Suspect]
     Active Substance: ETHINYL ESTRADIOL\LEVONORGESTREL
     Indication: Contraception
     Dates: start: 20110201, end: 20180615

REACTIONS (8)
  - Rash [None]
  - Pyrexia [None]
  - Arthralgia [None]
  - Myalgia [None]
  - Vomiting [None]
  - Diarrhoea [None]
  - Gait inability [None]
  - Autoimmune disorder [None]

NARRATIVE: CASE EVENT DATE: 20110201
